FAERS Safety Report 24055362 (Version 1)
Quarter: 2024Q3

REPORT INFORMATION
  Report Type: Report from Study
  Country: US (occurrence: US)
  Receive Date: 20240705
  Receipt Date: 20240705
  Transmission Date: 20241017
  Serious: Yes (Death)
  Sender: BAYER
  Company Number: US-BAYER-2024A096397

PATIENT
  Age: 87 Year
  Sex: Female
  Weight: 63.946 kg

DRUGS (16)
  1. ADEMPAS [Suspect]
     Active Substance: RIOCIGUAT
     Indication: Pulmonary arterial hypertension
     Dosage: UNK
     Route: 048
     Dates: start: 20210824
  2. ADEMPAS [Suspect]
     Active Substance: RIOCIGUAT
     Indication: Pulmonary arterial hypertension
     Dosage: 2.5 MG, TID
     Route: 048
  3. AMBRISENTAN [Concomitant]
     Active Substance: AMBRISENTAN
  4. FUROSEMIDE [Concomitant]
     Active Substance: FUROSEMIDE
  5. ATORVASTATIN CALCIUM [Concomitant]
     Active Substance: ATORVASTATIN CALCIUM
  6. VITAMIN C [Concomitant]
     Active Substance: ASCORBIC ACID
  7. UPTRAVI [Concomitant]
     Active Substance: SELEXIPAG
  8. VOLTAREN ARTHRITIS PAIN [Concomitant]
     Active Substance: DICLOFENAC SODIUM
  9. COVID-19 vaccine [Concomitant]
  10. ELIQUIS [Concomitant]
     Active Substance: APIXABAN
  11. METOPROLOL TARTRATE AND HYDROCHLOROTHIAZIDE [Concomitant]
     Active Substance: HYDROCHLOROTHIAZIDE\METOPROLOL TARTRATE
  12. CINNAMON [Concomitant]
     Active Substance: CINNAMON
  13. VITAMIN D3 [Concomitant]
     Active Substance: CHOLECALCIFEROL
  14. OXYGEN [Concomitant]
     Active Substance: OXYGEN
  15. VITAMIN B12 [Concomitant]
     Active Substance: CYANOCOBALAMIN
  16. GABAPENTIN [Concomitant]
     Active Substance: GABAPENTIN

REACTIONS (1)
  - Death [Fatal]

NARRATIVE: CASE EVENT DATE: 20240625
